FAERS Safety Report 18110923 (Version 2)
Quarter: 2020Q3

REPORT INFORMATION
  Report Type: Report from Study
  Country: US (occurrence: US)
  Receive Date: 20200804
  Receipt Date: 20200810
  Transmission Date: 20201103
  Serious: No
  Sender: FDA-Public Use
  Company Number: US-EXELIXIS-CABO-20031682

PATIENT
  Sex: Male

DRUGS (10)
  1. SENNA [Concomitant]
     Active Substance: SENNA LEAF\SENNOSIDES\SENNOSIDES A AND B
  2. BUMETANIDE. [Concomitant]
     Active Substance: BUMETANIDE
  3. LOPRESSOR [Concomitant]
     Active Substance: METOPROLOL TARTRATE
  4. CABOMETYX [Suspect]
     Active Substance: CABOZANTINIB S-MALATE
     Indication: RENAL CANCER
     Dosage: 60 MG, QD
     Route: 048
     Dates: start: 20200513
  5. CABOMETYX [Suspect]
     Active Substance: CABOZANTINIB S-MALATE
     Indication: PROSTATE CANCER
  6. NORVASC [Concomitant]
     Active Substance: AMLODIPINE BESYLATE
  7. HEPARIN [Concomitant]
     Active Substance: HEPARIN SODIUM
  8. CALCIUM [Concomitant]
     Active Substance: CALCIUM
  9. FLOMAX [Concomitant]
     Active Substance: TAMSULOSIN HYDROCHLORIDE
  10. CYCLOBENZAPRINE. [Concomitant]
     Active Substance: CYCLOBENZAPRINE

REACTIONS (3)
  - Nausea [Unknown]
  - Peripheral swelling [Unknown]
  - Urinary tract infection [Unknown]
